FAERS Safety Report 8438465-0 (Version None)
Quarter: 2012Q2

REPORT INFORMATION
  Report Type: 
  Country: None (occurrence: None)
  Receive Date: 20120615
  Receipt Date: 20120608
  Transmission Date: 20120825
  Serious: Yes (Other)
  Sender: FDA-Public Use
  Company Number: DE-AMGEN-DEUSP2012026896

PATIENT
  Age: 73 Year
  Sex: Male
  Weight: 68 kg

DRUGS (2)
  1. XGEVA [Suspect]
     Indication: PRODUCT USED FOR UNKNOWN INDICATION
     Dosage: 120 MG, UNK
     Dates: start: 20120524
  2. PROLIA [Suspect]
     Indication: HORMONE THERAPY
     Dosage: 60 MG, UNK
     Dates: start: 20110822, end: 20120227

REACTIONS (2)
  - METASTASES TO BONE [None]
  - METASTASES TO LYMPH NODES [None]
